FAERS Safety Report 25363404 (Version 1)
Quarter: 2025Q2

REPORT INFORMATION
  Report Type: Spontaneous
  Country: US (occurrence: None)
  Receive Date: 20250526
  Receipt Date: 20250526
  Transmission Date: 20250716
  Serious: Yes (Life-Threatening, Hospitalization, Disabling)
  Sender: FDA-CTU
  Company Number: None

PATIENT
  Age: 39 Year
  Sex: Male
  Weight: 83.25 kg

DRUGS (1)
  1. FINASTERIDE\MINOXIDIL [Suspect]
     Active Substance: FINASTERIDE\MINOXIDIL
     Indication: Alopecia
     Dates: start: 20230309, end: 20230327

REACTIONS (4)
  - Suicidal ideation [None]
  - Anxiety [None]
  - Depression [None]
  - Erectile dysfunction [None]

NARRATIVE: CASE EVENT DATE: 20230309
